FAERS Safety Report 6116092-8 (Version None)
Quarter: 2009Q1

REPORT INFORMATION
  Report Type: 
  Country: None (occurrence: None)
  Receive Date: 20090314
  Receipt Date: 20081202
  Transmission Date: 20090719
  Serious: No
  Sender: FDA-Public Use
  Company Number: US-ABBOTT-08P-163-0488470-00

PATIENT
  Sex: Female

DRUGS (8)
  1. HUMIRA [Suspect]
     Indication: RHEUMATOID ARTHRITIS
     Dates: start: 20081010
  2. WARFARIN SODIUM [Concomitant]
     Indication: PROPHYLAXIS
     Route: 048
     Dates: start: 19980101
  3. WARFARIN SODIUM [Concomitant]
     Indication: THROMBOSIS
  4. WARFARIN SODIUM [Concomitant]
     Indication: THROMBOSIS PROPHYLAXIS
  5. LEVOTHYROXINE SODIUM [Concomitant]
     Indication: HYPOTHYROIDISM
     Dosage: 2 DAYS A WEEK
     Route: 048
     Dates: start: 19880101
  6. PREDNISONE [Concomitant]
     Indication: RHEUMATOID ARTHRITIS
     Dates: start: 20070101
  7. PREDNISONE [Concomitant]
     Dosage: 1 IN AM, 1 IN PM
  8. VICODIN [Concomitant]
     Indication: PAIN
     Dosage: 1 EVERY 6 HOURS AS NEEDED

REACTIONS (4)
  - ARTHRITIS [None]
  - INJECTION SITE IRRITATION [None]
  - INJECTION SITE PAIN [None]
  - INJECTION SITE PARAESTHESIA [None]
